FAERS Safety Report 9358453 (Version 3)
Quarter: 2013Q3

REPORT INFORMATION
  Report Type: Spontaneous
  Country: US (occurrence: US)
  Receive Date: 20130620
  Receipt Date: 20130905
  Transmission Date: 20140515
  Serious: No
  Sender: FDA-Public Use
  Company Number: US-US-EMD SERONO, INC.-7189471

PATIENT
  Sex: Female

DRUGS (3)
  1. REBIF [Suspect]
     Indication: MULTIPLE SCLEROSIS
     Route: 058
     Dates: start: 200912
  2. IRON [Concomitant]
     Indication: PRODUCT USED FOR UNKNOWN INDICATION
     Route: 048
  3. IBUPROFEN [Concomitant]
     Indication: PREMEDICATION

REACTIONS (5)
  - Presyncope [Recovering/Resolving]
  - Blood pressure fluctuation [Recovered/Resolved]
  - Central nervous system lesion [Not Recovered/Not Resolved]
  - Dehydration [Not Recovered/Not Resolved]
  - Vitamin D decreased [Not Recovered/Not Resolved]
